FAERS Safety Report 8489650-3 (Version None)
Quarter: 2012Q3

REPORT INFORMATION
  Report Type: 
  Country: None (occurrence: None)
  Receive Date: 20120705
  Receipt Date: 20120626
  Transmission Date: 20120928
  Serious: Yes (Hospitalization, Congenital Anomaly)
  Sender: FDA-Public Use
  Company Number: US-JNJFOC-20120517823

PATIENT

DRUGS (2)
  1. FOLIC ACID [Concomitant]
     Indication: FOETAL EXPOSURE DURING PREGNANCY
     Route: 048
  2. TOPAMAX [Suspect]
     Indication: FOETAL EXPOSURE DURING PREGNANCY
     Route: 064

REACTIONS (4)
  - VENTRICULAR SEPTAL DEFECT [None]
  - TRANSPOSITION OF THE GREAT VESSELS [None]
  - ATRIAL SEPTAL DEFECT [None]
  - PATENT DUCTUS ARTERIOSUS [None]
